FAERS Safety Report 7137188-8 (Version None)
Quarter: 2010Q4

REPORT INFORMATION
  Report Type: 
  Country: None (occurrence: None)
  Receive Date: 20101206
  Receipt Date: 20080611
  Transmission Date: 20110411
  Serious: Yes (Death)
  Sender: FDA-Public Use
  Company Number: US-ACTELION-A-US2007-16360

PATIENT

DRUGS (10)
  1. ILOPROST INHALATION SOLUTION 5UG US [Suspect]
     Indication: PULMONARY ARTERIAL HYPERTENSION
     Dosage: 5 UG, 6-9 X DAY
     Route: 055
     Dates: start: 20070221, end: 20070907
  2. PEPCID [Concomitant]
  3. ALTACE [Concomitant]
  4. DIGOXIN [Concomitant]
  5. METOPROLOL [Concomitant]
  6. SPIRONOLACTONE [Concomitant]
  7. TORSEMIDE [Concomitant]
  8. EXCEDRIN (MIGRAINE) [Concomitant]
  9. VITAMIN D [Concomitant]
  10. REVATIO [Concomitant]

REACTIONS (3)
  - DEATH [None]
  - DIARRHOEA [None]
  - FLUSHING [None]
